FAERS Safety Report 22066583 (Version 2)
Quarter: 2023Q1

REPORT INFORMATION
  Report Type: Spontaneous
  Country: FR (occurrence: FR)
  Receive Date: 20230306
  Receipt Date: 20230331
  Transmission Date: 20230417
  Serious: Yes (Hospitalization)
  Sender: FDA-Public Use
  Company Number: None

PATIENT
  Age: 59 Year
  Sex: Male

DRUGS (4)
  1. VANCOMYCIN [Suspect]
     Active Substance: VANCOMYCIN
     Indication: Acute respiratory distress syndrome
     Dosage: UNK
     Route: 042
     Dates: start: 20230208
  2. CEFTAZIDIME [Suspect]
     Active Substance: CEFTAZIDIME
     Indication: Acute respiratory distress syndrome
     Dosage: UNK
     Route: 042
     Dates: start: 20230213
  3. IOMERON [Suspect]
     Active Substance: IOMEPROL
     Indication: Computerised tomogram
     Dosage: UNK
     Route: 042
     Dates: start: 20230208, end: 20230208
  4. AMPHOTERICIN B [Suspect]
     Active Substance: AMPHOTERICIN B
     Indication: Acute respiratory distress syndrome
     Dosage: UNK (POUDRE POUR SUSPENSION DE LIPOSOMES POUR PERFUSION)
     Route: 042
     Dates: start: 20230208

REACTIONS (1)
  - Rash maculo-papular [Not Recovered/Not Resolved]

NARRATIVE: CASE EVENT DATE: 20230215
